FAERS Safety Report 11054279 (Version 1)
Quarter: 2015Q2

REPORT INFORMATION
  Report Type: Spontaneous
  Country: CH (occurrence: CH)
  Receive Date: 20150422
  Receipt Date: 20150422
  Transmission Date: 20150821
  Serious: Yes (Hospitalization)
  Sender: FDA-Public Use
  Company Number: CH-ROCHE-1565592

PATIENT
  Age: 75 Year
  Sex: Male

DRUGS (3)
  1. VALIUM [Suspect]
     Active Substance: DIAZEPAM
     Route: 065
  2. VALIUM [Suspect]
     Active Substance: DIAZEPAM
     Indication: ALCOHOL WITHDRAWAL SYNDROME
     Dosage: DURING THE LAST WEEKS IN THE CONTEXT OF ALCOHOL WITHDRAWAL 40MG/D (4X10MG), ON 04 DECEMBER 2014?REDU
     Route: 065
     Dates: start: 20141204
  3. FENTANYL TRANSDERMAL [Suspect]
     Active Substance: FENTANYL
     Indication: PAIN
     Dosage: MEDICATED DRESSING,?FENTANYL-MEPHA MATRIX PATCHES, 50 MCG/H X APPLICATION FOR YEARS
     Route: 062

REACTIONS (4)
  - Somnolence [Recovered/Resolved]
  - Toxicity to various agents [Recovered/Resolved]
  - Respiratory depression [Recovered/Resolved]
  - Miosis [Recovered/Resolved]

NARRATIVE: CASE EVENT DATE: 20141205
